FAERS Safety Report 4750911-2 (Version None)
Quarter: 2005Q3

REPORT INFORMATION
  Report Type: 
  Country: None (occurrence: None)
  Receive Date: 20050818
  Receipt Date: 20050803
  Transmission Date: 20060218
  Serious: Yes (Death, Life-Threatening, Hospitalization)
  Sender: FDA-Public Use
  Company Number: P200500017

PATIENT
  Age: 78 Year
  Sex: Male

DRUGS (6)
  1. PLENAXIS [Suspect]
     Indication: PROSTATE CANCER
     Dosage: 100 MG SINGLE, INTRAMUSCULAR
     Route: 030
     Dates: start: 20050516, end: 20050516
  2. FUROSEMIDE [Concomitant]
  3. BENAZEPRIL [Concomitant]
  4. ATENOLOL [Concomitant]
  5. ZOCOR [Concomitant]
  6. POTASSIUM [Concomitant]

REACTIONS (1)
  - ACUTE MYOCARDIAL INFARCTION [None]
